FAERS Safety Report 24329276 (Version 1)
Quarter: 2024Q3

REPORT INFORMATION
  Report Type: Report from Study
  Country: CH (occurrence: CH)
  Receive Date: 20240917
  Receipt Date: 20240917
  Transmission Date: 20241017
  Serious: No
  Sender: TRAVERE THERAPEUTICS
  Company Number: TRAVERE

PATIENT

DRUGS (3)
  1. FILSPARI [Suspect]
     Active Substance: SPARSENTAN
     Indication: Product used for unknown indication
  2. FILSPARI [Suspect]
     Active Substance: SPARSENTAN
     Dosage: RE-STARTED WITH REDUCED DOSE
  3. FILSPARI [Suspect]
     Active Substance: SPARSENTAN
     Dosage: INCREASED DOSE AFTER 2 WEEKS

REACTIONS (3)
  - Hypotension [Unknown]
  - Dizziness [Unknown]
  - Tinnitus [Unknown]
